FAERS Safety Report 25620142 (Version 5)
Quarter: 2025Q3

REPORT INFORMATION
  Report Type: Report from Study
  Country: US (occurrence: US)
  Receive Date: 20250730
  Receipt Date: 20250821
  Transmission Date: 20251021
  Serious: Yes (Hospitalization)
  Sender: NUVATION BIO
  Company Number: US-Nuvation Bio-2181481

PATIENT
  Age: 50 Year
  Sex: Female

DRUGS (24)
  1. IBTROZI [Suspect]
     Active Substance: TALETRECTINIB ADIPATE
     Indication: Breast cancer female
     Dates: start: 20250716, end: 20250720
  2. ELIQUIS [Concomitant]
     Active Substance: APIXABAN
  3. DOCUSATE SENNOSIDES [Concomitant]
     Active Substance: DOCUSATE SODIUM\SENNOSIDES A AND B
  4. NALOXONE HCL [Concomitant]
     Active Substance: NALOXONE HYDROCHLORIDE
  5. MIRALAX [Concomitant]
     Active Substance: POLYETHYLENE GLYCOL 3350
  6. A+D zinc oxide [Concomitant]
  7. ZOLPIDEM TARTRATE [Concomitant]
     Active Substance: ZOLPIDEM TARTRATE
  8. REPOTRECTINIB [Concomitant]
     Active Substance: REPOTRECTINIB
  9. MEROPENEM [Concomitant]
     Active Substance: MEROPENEM
  10. VANCOMYCIN [Concomitant]
     Active Substance: VANCOMYCIN
  11. PREGABALIN [Concomitant]
     Active Substance: PREGABALIN
  12. OXYCONTIN [Concomitant]
     Active Substance: OXYCODONE HYDROCHLORIDE
  13. VITAMIN D [Concomitant]
     Active Substance: VITAMIN D NOS
  14. OXYCODONE [Concomitant]
     Active Substance: OXYCODONE
  15. Dulcolax [Concomitant]
  16. DRONABINOL [Concomitant]
     Active Substance: DRONABINOL
  17. Ammonium [Concomitant]
  18. METFORMIN [Concomitant]
     Active Substance: METFORMIN HYDROCHLORIDE
  19. NALTREXONE [Concomitant]
     Active Substance: NALTREXONE
  20. PROCHLORPERAZINE [Concomitant]
     Active Substance: PROCHLORPERAZINE
  21. OXYCODONE AND ACETAMINOPHEN [Concomitant]
     Active Substance: ACETAMINOPHEN\OXYCODONE HYDROCHLORIDE
  22. ZOLPIDEM [Concomitant]
     Active Substance: ZOLPIDEM TARTRATE
  23. AMITRIPTYLINE [Concomitant]
     Active Substance: AMITRIPTYLINE
  24. PRAVASTATIN [Concomitant]
     Active Substance: PRAVASTATIN

REACTIONS (1)
  - Motor dysfunction [Recovered/Resolved]

NARRATIVE: CASE EVENT DATE: 20250718
